FAERS Safety Report 15274040 (Version 1)
Quarter: 2018Q3

REPORT INFORMATION
  Report Type: Spontaneous
  Country: DK (occurrence: DK)
  Receive Date: 20180814
  Receipt Date: 20180814
  Transmission Date: 20181010
  Serious: Yes (Hospitalization)
  Sender: FDA-Public Use
  Company Number: DK-SUN PHARMACEUTICAL INDUSTRIES LTD-2018RR-181276

PATIENT
  Age: 57 Year
  Sex: Female

DRUGS (6)
  1. ABILIFY [Concomitant]
     Active Substance: ARIPIPRAZOLE
     Indication: PRODUCT USED FOR UNKNOWN INDICATION
     Dosage: ()
     Route: 065
  2. SERTRALINE [Suspect]
     Active Substance: SERTRALINE HYDROCHLORIDE
     Indication: BIPOLAR DISORDER
     Dosage: ()
     Route: 065
  3. LITAREX [Suspect]
     Active Substance: LITHIUM CITRATE
     Indication: BIPOLAR DISORDER
     Dosage: ()
     Route: 065
  4. EFEXOR [Concomitant]
     Active Substance: VENLAFAXINE HYDROCHLORIDE
     Indication: PRODUCT USED FOR UNKNOWN INDICATION
     Dosage: ()
     Route: 065
  5. SEROQUEL [Suspect]
     Active Substance: QUETIAPINE FUMARATE
     Indication: BIPOLAR DISORDER
     Dosage: ()
     Route: 065
  6. VENLAFAXINE [Concomitant]
     Active Substance: VENLAFAXINE HYDROCHLORIDE
     Indication: PRODUCT USED FOR UNKNOWN INDICATION
     Dosage: ()
     Route: 065

REACTIONS (8)
  - Electrocardiogram QT prolonged [Unknown]
  - Heart rate decreased [Unknown]
  - Nodal rhythm [Unknown]
  - Cognitive disorder [Unknown]
  - Myocardial infarction [Recovered/Resolved]
  - Myocardial infarction [Recovered/Resolved with Sequelae]
  - Congenital brain damage [Unknown]
  - Cardiac massage [Recovered/Resolved]

NARRATIVE: CASE EVENT DATE: 201005
